FAERS Safety Report 19188955 (Version 2)
Quarter: 2021Q2

REPORT INFORMATION
  Report Type: Spontaneous
  Country: JP (occurrence: JP)
  Receive Date: 20210428
  Receipt Date: 20210512
  Transmission Date: 20210717
  Serious: Yes (Other)
  Sender: FDA-Public Use
  Company Number: JP-ROCHE-2818374

PATIENT
  Age: 81 Year
  Sex: Female

DRUGS (1)
  1. BONVIVA [Suspect]
     Active Substance: IBANDRONATE SODIUM
     Indication: OSTEOPOROSIS
     Route: 042
     Dates: start: 20180706, end: 20201110

REACTIONS (2)
  - Chondrocalcinosis pyrophosphate [Recovered/Resolved]
  - Gouty tophus [Recovered/Resolved]

NARRATIVE: CASE EVENT DATE: 20201120
